FAERS Safety Report 24004986 (Version 1)
Quarter: 2024Q2

REPORT INFORMATION
  Report Type: Spontaneous
  Country: US (occurrence: None)
  Receive Date: 20240621
  Receipt Date: 20240621
  Transmission Date: 20240716
  Serious: No
  Sender: FDA-Public Use
  Company Number: None

PATIENT
  Age: 62 Year
  Sex: Female
  Weight: 78.75 kg

DRUGS (2)
  1. LOSARTAN [Suspect]
     Active Substance: LOSARTAN
     Indication: Hypertension
     Dosage: 90 TABLETS DAILY ORAL
     Route: 048
     Dates: start: 20240611, end: 20240618
  2. WELLBUTRIN [Concomitant]
     Active Substance: BUPROPION HYDROCHLORIDE

REACTIONS (10)
  - Swelling face [None]
  - Pharyngeal swelling [None]
  - Nasal congestion [None]
  - Sinus disorder [None]
  - Burning sensation [None]
  - Oropharyngeal pain [None]
  - Cough [None]
  - Chest discomfort [None]
  - Chromaturia [None]
  - Feeling abnormal [None]

NARRATIVE: CASE EVENT DATE: 20240617
